FAERS Safety Report 15722949 (Version 1)
Quarter: 2018Q4

REPORT INFORMATION
  Report Type: Spontaneous
  Country: US (occurrence: US)
  Receive Date: 20181214
  Receipt Date: 20181214
  Transmission Date: 20190205
  Serious: No
  Sender: FDA-Public Use
  Company Number: US-ADAPT PHARMA INC-2018ADP00081

PATIENT
  Sex: Female

DRUGS (2)
  1. NARCAN [Suspect]
     Active Substance: NALOXONE HYDROCHLORIDE
     Indication: OVERDOSE
     Dosage: 4 MG, UNK
     Route: 045
     Dates: start: 20181106, end: 20181106
  2. UNKNOWN (PRESUMED) OPIATE DRUG(S) [Suspect]
     Active Substance: UNSPECIFIED INGREDIENT
     Dosage: UNK, UNK
     Route: 065

REACTIONS (1)
  - Feeling hot [Not Recovered/Not Resolved]

NARRATIVE: CASE EVENT DATE: 20181106
